FAERS Safety Report 4291980-6 (Version None)
Quarter: 2004Q1

REPORT INFORMATION
  Report Type: 
  Country: None (occurrence: None)
  Receive Date: 20040126
  Receipt Date: 20030903
  Transmission Date: 20041129
  Serious: No
  Sender: FDA-Public Use
  Company Number: US_030997475

PATIENT
  Age: 48 Year
  Sex: Male

DRUGS (1)
  1. FORTEO [Suspect]
     Indication: OSTEOPOROSIS
     Dosage: 40 UG/DAY

REACTIONS (3)
  - ABDOMINAL PAIN [None]
  - MUSCLE CRAMP [None]
  - PRESCRIBED OVERDOSE [None]
